FAERS Safety Report 9281288 (Version 1)
Quarter: 2013Q2

REPORT INFORMATION
  Report Type: Spontaneous
  Country: US (occurrence: None)
  Receive Date: 20130508
  Receipt Date: 20130508
  Transmission Date: 20140414
  Serious: Yes (Hospitalization, Other)
  Sender: FDA-Public Use
  Company Number: None

PATIENT
  Age: 48 Year
  Sex: Female
  Weight: 98.88 kg

DRUGS (2)
  1. BEXTRA [Suspect]
     Indication: ARTHRITIS
     Dosage: 1 TABLET
     Route: 048
     Dates: start: 19990105, end: 20030405
  2. VIOXX [Suspect]
     Indication: FIBROMYALGIA
     Dosage: 1 TABLET ONCE DAILY
     Route: 048
     Dates: start: 20000405, end: 20040821

REACTIONS (1)
  - Gastrointestinal haemorrhage [None]
